FAERS Safety Report 20079072 (Version 2)
Quarter: 2022Q4

REPORT INFORMATION
  Report Type: Spontaneous
  Country: US (occurrence: US)
  Receive Date: 20211117
  Receipt Date: 20221021
  Transmission Date: 20230112
  Serious: No
  Sender: FDA-Public Use
  Company Number: US-ALLERGAN-2125431US

PATIENT
  Sex: Male

DRUGS (12)
  1. COMBIGAN [Suspect]
     Active Substance: BRIMONIDINE TARTRATE\TIMOLOL MALEATE
     Indication: Intraocular pressure increased
     Dosage: UNK
     Route: 047
     Dates: start: 202112
  2. COMBIGAN [Suspect]
     Active Substance: BRIMONIDINE TARTRATE\TIMOLOL MALEATE
     Dosage: 2 GTT, BID
     Route: 047
  3. COMBIGAN [Suspect]
     Active Substance: BRIMONIDINE TARTRATE\TIMOLOL MALEATE
     Dosage: 2 GTT
     Route: 047
  4. MULTAQ [Concomitant]
     Active Substance: DRONEDARONE
  5. PROSCAR [Concomitant]
     Active Substance: FINASTERIDE
  6. FOLIC ACID [Concomitant]
     Active Substance: FOLIC ACID
  7. LASIX [Concomitant]
     Active Substance: FUROSEMIDE
  8. LOSARTAN [Concomitant]
     Active Substance: LOSARTAN
  9. DICLOFENAC [Concomitant]
     Active Substance: DICLOFENAC
     Route: 061
  10. TAMSULOSIN [Concomitant]
     Active Substance: TAMSULOSIN
  11. SULFASALAZINE [Concomitant]
     Active Substance: SULFASALAZINE
  12. PREDNISONE ACETATE [Concomitant]
     Active Substance: PREDNISONE ACETATE
     Indication: Interstitial lung disease

REACTIONS (2)
  - Accidental exposure to product [Unknown]
  - Product use complaint [Unknown]
